FAERS Safety Report 6077520-X (Version None)
Quarter: 2009Q1

REPORT INFORMATION
  Report Type: 
  Country: None (occurrence: None)
  Receive Date: 20090213
  Receipt Date: 20090204
  Transmission Date: 20090719
  Serious: Yes (Hospitalization)
  Sender: FDA-Public Use
  Company Number: JP-JNJFOC-20090106093

PATIENT
  Age: 71 Year
  Sex: Female

DRUGS (5)
  1. REMICADE [Suspect]
     Dosage: 19 TH DOSE
     Route: 042
  2. REMICADE [Suspect]
     Dosage: 18TH DOSE
     Route: 042
  3. REMICADE [Suspect]
     Dosage: 17TH DOSE
     Route: 042
  4. REMICADE [Suspect]
     Indication: RHEUMATOID ARTHRITIS
     Dosage: 16 DOSES
     Route: 042
  5. RHEUMATREX [Concomitant]
     Indication: RHEUMATOID ARTHRITIS
     Route: 048

REACTIONS (4)
  - ARTHRALGIA [None]
  - CHILLS [None]
  - INFUSION RELATED REACTION [None]
  - PYREXIA [None]
